FAERS Safety Report 7412596-6 (Version None)
Quarter: 2011Q2

REPORT INFORMATION
  Report Type: 
  Country: None (occurrence: None)
  Receive Date: 20110413
  Receipt Date: 20110407
  Transmission Date: 20111010
  Serious: Yes (Death, Other)
  Sender: FDA-Public Use
  Company Number: JP-JNJFOC-20100708517

PATIENT
  Sex: Female
  Weight: 45 kg

DRUGS (7)
  1. TIENAM [Concomitant]
     Route: 065
  2. MAXIPIME [Concomitant]
     Route: 042
  3. DOXORUBICIN HCL [Suspect]
     Dosage: CYCLE 1
     Route: 042
  4. DECADRON [Concomitant]
     Route: 065
  5. DOXORUBICIN HCL [Suspect]
     Indication: OVARIAN CANCER RECURRENT
     Dosage: CYCLE 2
     Route: 042
  6. NEUTROGIN [Concomitant]
     Route: 058
  7. ZOSYN [Concomitant]
     Route: 042

REACTIONS (3)
  - OVARIAN CANCER [None]
  - WHITE BLOOD CELL COUNT DECREASED [None]
  - PLEURAL EFFUSION [None]
